FAERS Safety Report 25230923 (Version 1)
Quarter: 2025Q2

REPORT INFORMATION
  Report Type: Spontaneous
  Country: MX (occurrence: MX)
  Receive Date: 20250423
  Receipt Date: 20250423
  Transmission Date: 20250716
  Serious: Yes (Other)
  Sender: SANDOZ
  Company Number: MX-002147023-NVSC2024MX057729

PATIENT
  Age: 69 Year
  Sex: Female
  Weight: 65 kg

DRUGS (12)
  1. AMLODIPINE [Suspect]
     Active Substance: AMLODIPINE BESYLATE
     Indication: Product used for unknown indication
     Route: 065
  2. HYDROCHLOROTHIAZIDE\VALSARTAN [Suspect]
     Active Substance: HYDROCHLOROTHIAZIDE\VALSARTAN
     Indication: Hypertension
     Route: 048
     Dates: start: 202401, end: 20240622
  3. HYDROCHLOROTHIAZIDE\VALSARTAN [Suspect]
     Active Substance: HYDROCHLOROTHIAZIDE\VALSARTAN
     Dosage: 160/12.5 MG, QD (AT NIGHT)
     Route: 048
  4. DIOVAN [Suspect]
     Active Substance: VALSARTAN
     Route: 048
     Dates: start: 202401
  5. DIOVAN [Suspect]
     Active Substance: VALSARTAN
     Route: 048
  6. DIOVAN [Suspect]
     Active Substance: VALSARTAN
     Dosage: 160 MG, QD (IN THE MORNING)
     Route: 048
  7. DIOVAN [Suspect]
     Active Substance: VALSARTAN
     Indication: Hypertension
     Route: 048
     Dates: start: 202311, end: 202312
  8. EXFORGE [Suspect]
     Active Substance: AMLODIPINE BESYLATE\VALSARTAN
     Indication: Hypertension
     Dosage: 1 DOSAGE FORM (320/5 MG)
     Route: 048
     Dates: start: 202309, end: 202311
  9. EXFORGE [Suspect]
     Active Substance: AMLODIPINE BESYLATE\VALSARTAN
     Route: 048
  10. EXFORGE HCT [Suspect]
     Active Substance: AMLODIPINE BESYLATE\HYDROCHLOROTHIAZIDE\VALSARTAN
     Indication: Hypertension
     Dosage: 1 DF, QD, 5/160/12.5, IN A DOSE OF 1 DAILY IN THE MORNING, START DATE: 23-JUN-2024.
     Route: 048
  11. HYDROCHLOROTHIAZIDE [Concomitant]
     Active Substance: HYDROCHLOROTHIAZIDE
     Indication: Product used for unknown indication
     Route: 065
     Dates: start: 202311, end: 202312
  12. Karet [Concomitant]
     Indication: Product used for unknown indication
     Route: 065

REACTIONS (5)
  - Diabetes mellitus [Not Recovered/Not Resolved]
  - Blood pressure abnormal [Not Recovered/Not Resolved]
  - Hypertension [Recovered/Resolved]
  - Peripheral swelling [Not Recovered/Not Resolved]
  - Headache [Not Recovered/Not Resolved]

NARRATIVE: CASE EVENT DATE: 20240101
